FAERS Safety Report 7107250 (Version 4)
Quarter: 2014Q2

REPORT INFORMATION
  Report Type: Report from Study
  Country: JP (occurrence: JP)
  Receive Date: 20090908
  Receipt Date: 20140427
  Transmission Date: 20141212
  Serious: Yes (Hospitalization, Other)
  Sender: FDA-Public Use
  Company Number: PHHY2009JP33492

PATIENT
  Age: 83 Year
  Sex: Male

DRUGS (12)
  1. AMN107 [Suspect]
     Indication: CHRONIC MYELOID LEUKAEMIA
     Dosage: 200 MG, PER DAY
     Route: 048
     Dates: start: 20090410, end: 20090730
  2. AMN107 [Suspect]
     Dosage: 200 MG, PER DAY
     Route: 048
     Dates: start: 20090827
  3. ALOSITOL [Concomitant]
     Indication: CHRONIC MYELOID LEUKAEMIA
     Dosage: 100 MG, UNK
     Route: 048
  4. GASMOTIN [Concomitant]
     Indication: CHRONIC MYELOID LEUKAEMIA
     Dosage: 15 MG, UNK
     Route: 048
  5. METHYCOBAL [Concomitant]
     Indication: CHRONIC MYELOID LEUKAEMIA
     Dosage: 1500 UG, UNK
     Route: 048
  6. LENDORMIN [Concomitant]
     Indication: CHRONIC MYELOID LEUKAEMIA
     Dosage: 0.25 MG, UNK
     Route: 048
  7. ALLOID [Concomitant]
     Indication: CHRONIC MYELOID LEUKAEMIA
     Dosage: 60 UL, UNK
     Route: 048
  8. TOUGHMAC E [Concomitant]
     Indication: CHRONIC MYELOID LEUKAEMIA
     Dosage: 3 DF, UNK
     Route: 048
  9. WARFARIN POTASSIUM [Concomitant]
     Indication: ATRIAL FIBRILLATION
     Dosage: 2 NG, UNK
     Route: 048
     Dates: start: 20090730
  10. WARFARIN POTASSIUM [Concomitant]
     Dosage: 1 NG, UNK
     Route: 048
  11. WARFARIN POTASSIUM [Concomitant]
     Dosage: 3 NG, UNK
     Route: 048
  12. HEPARIN SODIUM [Concomitant]
     Indication: ATRIAL FIBRILLATION
     Dosage: 8000 IU, UNK
     Route: 041
     Dates: start: 20090727, end: 20090804

REACTIONS (2)
  - Sick sinus syndrome [Unknown]
  - Atrial fibrillation [Recovered/Resolved]
